FAERS Safety Report 12788098 (Version 1)
Quarter: 2016Q3

REPORT INFORMATION
  Report Type: Spontaneous
  Country: IL (occurrence: IL)
  Receive Date: 20160928
  Receipt Date: 20160928
  Transmission Date: 20161109
  Serious: Yes (Other)
  Sender: FDA-Public Use
  Company Number: IL-WARNER CHILCOTT, LLC-1057807

PATIENT
  Age: 62 Year
  Sex: Female

DRUGS (2)
  1. TRITACE [Concomitant]
     Active Substance: RAMIPRIL
  2. ACTONEL [Suspect]
     Active Substance: RISEDRONATE SODIUM
     Indication: OSTEOPOROSIS
     Route: 048
     Dates: start: 201606, end: 20160901

REACTIONS (5)
  - Oropharyngeal pain [Recovering/Resolving]
  - Oesophagitis [Recovering/Resolving]
  - Lymphadenopathy [Recovering/Resolving]
  - Suffocation feeling [Recovering/Resolving]
  - Dysphagia [Recovering/Resolving]

NARRATIVE: CASE EVENT DATE: 201608
